FAERS Safety Report 10174713 (Version 5)
Quarter: 2014Q2

REPORT INFORMATION
  Report Type: Spontaneous
  Country: US (occurrence: US)
  Receive Date: 20140515
  Receipt Date: 20140624
  Transmission Date: 20141212
  Serious: Yes (Hospitalization, Other)
  Sender: FDA-Public Use
  Company Number: US-PFIZER INC-2014131241

PATIENT
  Age: 58 Year
  Sex: Male

DRUGS (9)
  1. REVATIO [Suspect]
     Indication: PULMONARY HYPERTENSION
     Dosage: 20 MG, 3X/DAY
     Route: 048
     Dates: start: 201101, end: 201403
  2. REVATIO [Suspect]
     Dosage: 80 MG, 3X/DAY
     Route: 048
     Dates: start: 201403
  3. URSODIOL [Concomitant]
     Dosage: UNK
  4. VALCYTE [Concomitant]
     Dosage: UNK
  5. SENNA [Concomitant]
     Dosage: UNK
  6. FOLIC ACID [Concomitant]
     Dosage: UNK
  7. VENOFER [Concomitant]
     Dosage: UNK
  8. COLACE [Concomitant]
     Dosage: UNK
  9. ERGOCALCIFEROL [Concomitant]
     Dosage: UNK

REACTIONS (1)
  - Liver disorder [Recovered/Resolved]
